FAERS Safety Report 7565747-7 (Version None)
Quarter: 2011Q2

REPORT INFORMATION
  Report Type: 
  Country: None (occurrence: None)
  Receive Date: 20110616
  Receipt Date: 20110601
  Transmission Date: 20111010
  Serious: Yes (Hospitalization)
  Sender: FDA-Public Use
  Company Number: DSA_46893_2011

PATIENT
  Sex: Female

DRUGS (13)
  1. GABAPENTIN [Concomitant]
  2. TRAZODONE HCL [Concomitant]
  3. MIRALAX /00754501/ [Concomitant]
  4. FIBER [Concomitant]
  5. COPAXONE [Concomitant]
  6. BACLOFEN [Concomitant]
  7. CALCIUM CARBONATE [Concomitant]
  8. PROBIOTIC [Concomitant]
  9. INSULIN [Concomitant]
  10. AMPYRA [Suspect]
     Indication: PRODUCT USED FOR UNKNOWN INDICATION
     Dosage: (10 MG QD ORAL)
     Route: 048
     Dates: start: 20110201, end: 20110415
  11. MULTI-VITAMINS [Concomitant]
  12. WELLBUTRIN [Suspect]
     Indication: PRODUCT USED FOR UNKNOWN INDICATION
     Dosage: (DF ORAL)
     Route: 048
     Dates: end: 20110415
  13. FLOMAX [Concomitant]

REACTIONS (9)
  - DISORIENTATION [None]
  - INAPPROPRIATE AFFECT [None]
  - CONVULSION [None]
  - BLOOD GLUCOSE FLUCTUATION [None]
  - MULTIPLE SCLEROSIS RELAPSE [None]
  - MEMORY IMPAIRMENT [None]
  - DRUG INEFFECTIVE [None]
  - SPEECH DISORDER [None]
  - HYPOGLYCAEMIA [None]
